FAERS Safety Report 14711193 (Version 1)
Quarter: 2018Q2

REPORT INFORMATION
  Report Type: Spontaneous
  Country: ML (occurrence: ML)
  Receive Date: 20180403
  Receipt Date: 20180403
  Transmission Date: 20180711
  Serious: Yes (Other)
  Sender: FDA-Public Use
  Company Number: ML-MERCK KGAA-2045038

PATIENT
  Age: 55 Year
  Sex: Female
  Weight: 96 kg

DRUGS (1)
  1. NOVOTHYROX [Suspect]
     Active Substance: LEVOTHYROXINE SODIUM
     Indication: HYPOTHYROIDISM
     Route: 048
     Dates: start: 20171115, end: 20171117

REACTIONS (4)
  - Hyperthyroidism [None]
  - General physical health deterioration [None]
  - Postmenopausal haemorrhage [None]
  - Dizziness [Recovered/Resolved]

NARRATIVE: CASE EVENT DATE: 201711
